FAERS Safety Report 13444880 (Version 2)
Quarter: 2017Q2

REPORT INFORMATION
  Report Type: Spontaneous
  Country: CH (occurrence: CH)
  Receive Date: 20170414
  Receipt Date: 20170419
  Transmission Date: 20170830
  Serious: Yes (Death)
  Sender: FDA-Public Use
  Company Number: CH-009507513-1704CHE002202

PATIENT
  Age: 31 Year
  Sex: Male
  Weight: 60 kg

DRUGS (2)
  1. TEMODAL [Suspect]
     Active Substance: TEMOZOLOMIDE
     Indication: EPENDYMOMA
     Dosage: 125 MG/M2, UNK
     Route: 048
     Dates: start: 20170321, end: 20170325
  2. TYVERB [Suspect]
     Active Substance: LAPATINIB
     Indication: EPENDYMOMA
     Dosage: UNK

REACTIONS (3)
  - Paresis [Not Recovered/Not Resolved]
  - Neoplasm progression [Fatal]
  - Off label use [Unknown]

NARRATIVE: CASE EVENT DATE: 20170321
